FAERS Safety Report 12578449 (Version 2)
Quarter: 2017Q4

REPORT INFORMATION
  Report Type: Spontaneous
  Country: US (occurrence: US)
  Receive Date: 20160721
  Receipt Date: 20171222
  Transmission Date: 20180320
  Serious: Yes (Other)
  Sender: FDA-Public Use
  Company Number: US-LUPIN PHARMACEUTICALS INC.-2016-03196

PATIENT
  Age: 32 Year
  Sex: Female

DRUGS (10)
  1. TOPIRAMATE. [Suspect]
     Active Substance: TOPIRAMATE
     Dosage: 100 MG, BID
     Route: 065
  2. CALCIUM CARBONATE. [Concomitant]
     Active Substance: CALCIUM CARBONATE
     Indication: PRODUCT USED FOR UNKNOWN INDICATION
     Dosage: 100 MG, UNK
     Route: 065
  3. TOPIRAMATE. [Suspect]
     Active Substance: TOPIRAMATE
     Dosage: 50 MG, UNK
     Route: 065
  4. VERAPAMIL [Concomitant]
     Active Substance: VERAPAMIL HYDROCHLORIDE
     Indication: HEMIPLEGIC MIGRAINE
     Dosage: UNK
     Route: 065
  5. CITALOPRAM [Concomitant]
     Active Substance: CITALOPRAM HYDROBROMIDE
     Indication: HEMIPLEGIC MIGRAINE
     Dosage: UNK
     Route: 065
  6. MEMANTINE. [Concomitant]
     Active Substance: MEMANTINE
     Indication: HEMIPLEGIC MIGRAINE
     Dosage: UNK
     Route: 065
  7. GABAPENTIN. [Concomitant]
     Active Substance: GABAPENTIN
     Indication: HEMIPLEGIC MIGRAINE
     Dosage: UNK
     Route: 065
  8. TOPIRAMATE. [Suspect]
     Active Substance: TOPIRAMATE
     Indication: HEMIPLEGIC MIGRAINE
     Dosage: 25 MG, BID
     Route: 065
  9. AMITRIPTYLINE [Concomitant]
     Active Substance: AMITRIPTYLINE
     Indication: HEMIPLEGIC MIGRAINE
     Dosage: UNK
     Route: 065
  10. LAMOTRIGINE. [Concomitant]
     Active Substance: LAMOTRIGINE
     Indication: HEMIPLEGIC MIGRAINE
     Dosage: UNK
     Route: 065

REACTIONS (3)
  - Salivary gland calculus [Unknown]
  - Gastrooesophageal reflux disease [Recovered/Resolved]
  - Sialoadenitis [Unknown]
